FAERS Safety Report 21503183 (Version 1)
Quarter: 2022Q4

REPORT INFORMATION
  Report Type: Report from Study
  Country: US (occurrence: US)
  Receive Date: 20221025
  Receipt Date: 20221025
  Transmission Date: 20230112
  Serious: No
  Sender: FDA-Public Use
  Company Number: US-ABBVIE-4162239

PATIENT
  Age: 66 Year
  Sex: Male
  Weight: 70.306 kg

DRUGS (3)
  1. CREON [Suspect]
     Active Substance: PANCRELIPASE AMYLASE\PANCRELIPASE LIPASE\PANCRELIPASE PROTEASE
     Indication: Pancreatic carcinoma
     Dosage: FORM STRENGTH: 12000 IU (INTERNATIONAL UNIT)?FREQUENCY TEXT: 3 CAPSULES PER MEAL, 1 CAPSULE PER S...
     Route: 048
     Dates: start: 202209
  2. CREON [Suspect]
     Active Substance: PANCRELIPASE AMYLASE\PANCRELIPASE LIPASE\PANCRELIPASE PROTEASE
     Indication: Pancreatic carcinoma
     Dosage: FORM STRENGTH: 12000 UNIT?FREQUENCY TEXT: 2 CAPSULES PER MEAL, 1 CAPSULE PER SNACK? INTRAVENOUS
     Dates: start: 202207, end: 202209
  3. PANTOPRAZOLE [Concomitant]
     Active Substance: PANTOPRAZOLE
     Indication: Gastrooesophageal reflux disease

REACTIONS (3)
  - Weight gain poor [Not Recovered/Not Resolved]
  - Malabsorption [Not Recovered/Not Resolved]
  - Frequent bowel movements [Unknown]

NARRATIVE: CASE EVENT DATE: 20220701
